FAERS Safety Report 6163561-0 (Version None)
Quarter: 2009Q2

REPORT INFORMATION
  Report Type: 
  Country: None (occurrence: None)
  Receive Date: 20090422
  Receipt Date: 20090417
  Transmission Date: 20091009
  Serious: Yes (Other)
  Sender: FDA-Public Use
  Company Number: NO-AVENTIS-200912717GDDC

PATIENT
  Sex: Male

DRUGS (8)
  1. INSULIN GLARGINE [Suspect]
     Route: 058
  2. OPTIPEN (INSULIN PUMP) [Suspect]
  3. CODE UNBROKEN [Suspect]
     Route: 048
  4. ACETYLSALICYLIC ACID SRT [Concomitant]
     Dates: start: 20040201
  5. BISOPROLOL [Concomitant]
     Dosage: DOSE QUANTITY: 7.5
     Dates: start: 20040201
  6. SIMVASTATIN [Concomitant]
     Dosage: DOSE QUANTITY: 20
     Dates: start: 20040201
  7. ENALAPRIL [Concomitant]
     Indication: HYPERTENSION
     Dosage: DOSE QUANTITY: 20
     Dates: start: 20040201
  8. HYDROCHLOROTHIAZIDE [Concomitant]
     Indication: HYPERTENSION
     Dosage: DOSE QUANTITY: 6
     Dates: start: 20040201

REACTIONS (4)
  - APRAXIA [None]
  - DIZZINESS [None]
  - DRUG ADMINISTRATION ERROR [None]
  - OVERDOSE [None]
